FAERS Safety Report 6185231-5 (Version None)
Quarter: 2009Q2

REPORT INFORMATION
  Report Type: 
  Country: None (occurrence: None)
  Receive Date: 20090511
  Receipt Date: 20090429
  Transmission Date: 20091009
  Serious: Yes (Hospitalization)
  Sender: FDA-Public Use
  Company Number: US-BIOGENIDEC-2009BI013167

PATIENT
  Age: 51 Year
  Sex: Female

DRUGS (2)
  1. AVONEX [Suspect]
     Indication: MULTIPLE SCLEROSIS
     Route: 030
     Dates: start: 20001117, end: 20060605
  2. AVONEX [Suspect]
     Route: 030
     Dates: start: 20070727

REACTIONS (5)
  - DYSURIA [None]
  - FALL [None]
  - MUSCLE SPASTICITY [None]
  - ORTHOSTATIC HYPOTENSION [None]
  - URINARY RETENTION [None]
